FAERS Safety Report 8299434-7 (Version None)
Quarter: 2012Q2

REPORT INFORMATION
  Report Type: 
  Country: None (occurrence: None)
  Receive Date: 20120419
  Receipt Date: 20120413
  Transmission Date: 20120825
  Serious: Yes (Other)
  Sender: FDA-Public Use
  Company Number: BR-ABBOTT-12P-020-0912586-00

PATIENT
  Sex: Female
  Weight: 130 kg

DRUGS (2)
  1. UNKNOWN MEDICATIONS [Concomitant]
     Indication: PRODUCT USED FOR UNKNOWN INDICATION
  2. HUMIRA [Suspect]
     Indication: RHEUMATOID ARTHRITIS
     Route: 058
     Dates: start: 20100308

REACTIONS (12)
  - CEREBROVASCULAR ACCIDENT [None]
  - ATROPHY [None]
  - ARTHRITIS [None]
  - OEDEMA PERIPHERAL [None]
  - SKIN DISCOLOURATION [None]
  - COUGH [None]
  - HYPOAESTHESIA [None]
  - SWELLING [None]
  - HYPOAESTHESIA ORAL [None]
  - JOINT SWELLING [None]
  - GAIT DISTURBANCE [None]
  - POLYARTHRITIS [None]
